FAERS Safety Report 10521845 (Version 1)
Quarter: 2014Q4

REPORT INFORMATION
  Report Type: Spontaneous
  Country: FR (occurrence: FR)
  Receive Date: 20141016
  Receipt Date: 20141016
  Transmission Date: 20150528
  Serious: Yes (Hospitalization)
  Sender: FDA-Public Use
  Company Number: FR-SA-2014SA137878

PATIENT
  Age: 64 Year
  Sex: Female

DRUGS (3)
  1. CIFLOX [Concomitant]
     Active Substance: CIPROFLOXACIN
  2. AUGMENTIN [Concomitant]
     Active Substance: AMOXICILLIN\CLAVULANATE POTASSIUM
  3. TAXOTERE [Suspect]
     Active Substance: DOCETAXEL
     Indication: BREAST CANCER
     Dosage: DOSE:100 MG/M2 FOR 3 CYCLES, 75 MG/M2 FOR THE LAST CYCLE?ROUTE: IV INFUSION
     Dates: start: 20140516, end: 20140718

REACTIONS (2)
  - Drug intolerance [Unknown]
  - Lung disorder [Recovered/Resolved]

NARRATIVE: CASE EVENT DATE: 20140725
